FAERS Safety Report 4421965-8 (Version None)
Quarter: 2004Q3

REPORT INFORMATION
  Report Type: 
  Country: None (occurrence: None)
  Receive Date: 20040805
  Receipt Date: 20040722
  Transmission Date: 20050211
  Serious: Yes (Death)
  Sender: FDA-Public Use
  Company Number: T01-USA-02081-01

PATIENT
  Sex: Female
  Weight: 0.423 kg

DRUGS (2)
  1. INFASURF PRESERVATIVE FREE [Suspect]
     Indication: NEONATAL RESPIRATORY DISTRESS SYNDROME
  2. SURVANTA [Suspect]
     Indication: NEONATAL RESPIRATORY DISTRESS SYNDROME
     Dates: start: 20011018, end: 20011018

REACTIONS (5)
  - BLOOD PH DECREASED [None]
  - BRADYCARDIA NEONATAL [None]
  - NEONATAL DISORDER [None]
  - PNEUMOTHORAX [None]
  - PREMATURE BABY [None]
